FAERS Safety Report 21321879 (Version 1)
Quarter: 2022Q3

REPORT INFORMATION
  Report Type: Spontaneous
  Country: US (occurrence: US)
  Receive Date: 20220912
  Receipt Date: 20220912
  Transmission Date: 20221026
  Serious: No
  Sender: FDA-Public Use
  Company Number: US-ALLERGAN-2202992US

PATIENT
  Sex: Male

DRUGS (1)
  1. ANDRODERM [Suspect]
     Active Substance: TESTOSTERONE
     Indication: Hypogonadism
     Dosage: 4 MG, QD
     Dates: start: 202111, end: 202201

REACTIONS (3)
  - Therapy interrupted [Unknown]
  - Depression [Recovering/Resolving]
  - Insomnia [Recovering/Resolving]
